FAERS Safety Report 25501729 (Version 1)
Quarter: 2025Q3

REPORT INFORMATION
  Report Type: Spontaneous
  Country: US (occurrence: US)
  Receive Date: 20250702
  Receipt Date: 20250702
  Transmission Date: 20251021
  Serious: No
  Sender: ELI LILLY AND COMPANY
  Company Number: US-ELI_LILLY_AND_COMPANY-US202506023857

PATIENT
  Age: 63 Year
  Sex: Male

DRUGS (1)
  1. FORTEO [Suspect]
     Active Substance: TERIPARATIDE
     Indication: Product used for unknown indication
     Route: 065

REACTIONS (3)
  - Abdominal discomfort [Unknown]
  - Fatigue [Unknown]
  - Nausea [Unknown]

NARRATIVE: CASE EVENT DATE: 20250601
